FAERS Safety Report 8660744 (Version 3)
Quarter: 2013Q4

REPORT INFORMATION
  Report Type: Spontaneous
  Country: US (occurrence: US)
  Receive Date: 20120711
  Receipt Date: 20131105
  Transmission Date: 20140711
  Serious: Yes (Other)
  Sender: FDA-Public Use
  Company Number: US-009507513-2012SP022629

PATIENT
  Age: 63 Year
  Sex: Female

DRUGS (4)
  1. TEMODAR [Suspect]
     Indication: PRODUCT USED FOR UNKNOWN INDICATION
     Dosage: 250 MG, X 5 DAYS ON MONTHLY BASIS
     Route: 048
     Dates: start: 2001
  2. TEMODAR [Suspect]
     Dosage: 250 MG, X 5 DAYS ON MONTHLY BASIS
     Dates: start: 201102
  3. KYTRIL [Concomitant]
     Indication: PRODUCT USED FOR UNKNOWN INDICATION
     Route: 048
  4. XANAX [Concomitant]
     Indication: PRODUCT USED FOR UNKNOWN INDICATION

REACTIONS (3)
  - Disease recurrence [Unknown]
  - Impaired work ability [Unknown]
  - Unevaluable event [Unknown]
